FAERS Safety Report 13580795 (Version 1)
Quarter: 2017Q2

REPORT INFORMATION
  Report Type: Spontaneous
  Country: US (occurrence: US)
  Receive Date: 20170525
  Receipt Date: 20170525
  Transmission Date: 20170830
  Serious: Yes (Death)
  Sender: FDA-Public Use
  Company Number: None

PATIENT
  Age: 54 Year
  Sex: Male

DRUGS (8)
  1. CARBAMAZEPIN [Concomitant]
     Active Substance: CARBAMAZEPINE
  2. LEVETIRACETA [Concomitant]
  3. NISOLDIPINE. [Concomitant]
     Active Substance: NISOLDIPINE
  4. SUTENT [Suspect]
     Active Substance: SUNITINIB MALATE
     Indication: NEOPLASM MALIGNANT
     Dosage: FREQUENCY - QD FOR 14 DS 7OFF
     Route: 048
     Dates: start: 201610, end: 201703
  5. MORPHINE SUL [Concomitant]
     Active Substance: MORPHINE SULFATE
  6. PROMETHAZINE [Concomitant]
     Active Substance: PROMETHAZINE\PROMETHAZINE HYDROCHLORIDE
  7. LASIX [Concomitant]
     Active Substance: FUROSEMIDE
  8. LOSARTAN POTASSIUM. [Concomitant]
     Active Substance: LOSARTAN POTASSIUM

REACTIONS (1)
  - Death [None]

NARRATIVE: CASE EVENT DATE: 201702
